FAERS Safety Report 18061405 (Version 1)
Quarter: 2020Q3

REPORT INFORMATION
  Report Type: Spontaneous
  Country: US (occurrence: US)
  Receive Date: 20200723
  Receipt Date: 20200723
  Transmission Date: 20201103
  Serious: Yes (Other)
  Sender: FDA-Public Use
  Company Number: US-KASDIRECT-2020-US-013287

PATIENT
  Age: 8 Month
  Sex: Female
  Weight: 9.07 kg

DRUGS (1)
  1. BABYGANICS SUNSCREEN 50 SPF [Suspect]
     Active Substance: OCTINOXATE\OCTISALATE\ZINC OXIDE
     Indication: PRODUCT USED FOR UNKNOWN INDICATION
     Route: 061

REACTIONS (2)
  - Eye movement disorder [Unknown]
  - Posture abnormal [Unknown]
